FAERS Safety Report 22317210 (Version 4)
Quarter: 2024Q3

REPORT INFORMATION
  Report Type: Report from Study
  Country: KR (occurrence: KR)
  Receive Date: 20230515
  Receipt Date: 20240711
  Transmission Date: 20241016
  Serious: Yes (Death, Life-Threatening, Hospitalization, Other)
  Sender: ABBVIE
  Company Number: KR-ABBVIE-4764731

PATIENT
  Age: 57 Year
  Sex: Male
  Weight: 64 kg

DRUGS (3)
  1. RINVOQ [Suspect]
     Active Substance: UPADACITINIB
     Indication: Dermatitis atopic
     Route: 048
     Dates: start: 20221124, end: 20230206
  2. RISPERDAL [Concomitant]
     Active Substance: RISPERIDONE
     Indication: HIV infection
     Dosage: FORM STRENGTH: 2 MG
     Route: 048
     Dates: start: 20230217, end: 20230221
  3. ITRACONAZOLE [Concomitant]
     Active Substance: ITRACONAZOLE
     Indication: Dermatitis atopic
     Dosage: STRENGTH: 100 MILLIGRAM
     Route: 048
     Dates: start: 20221212

REACTIONS (4)
  - Septic shock [Fatal]
  - COVID-19 pneumonia [Not Recovered/Not Resolved]
  - HIV test positive [Not Recovered/Not Resolved]
  - Pneumothorax [Not Recovered/Not Resolved]

NARRATIVE: CASE EVENT DATE: 20230206
